FAERS Safety Report 19548641 (Version 1)
Quarter: 2021Q3

REPORT INFORMATION
  Report Type: Spontaneous
  Country: US (occurrence: US)
  Receive Date: 20210714
  Receipt Date: 20210714
  Transmission Date: 20211014
  Serious: Yes (Hospitalization)
  Sender: FDA-Public Use
  Company Number: None

PATIENT
  Sex: Male

DRUGS (3)
  1. SILDENAFIL. [Concomitant]
     Active Substance: SILDENAFIL
  2. AMBRISENTAN 5MG TAB CIPLA USA [Suspect]
     Active Substance: AMBRISENTAN
     Indication: ESSENTIAL HYPERTENSION
     Route: 048
  3. AMBRISENTAN 5MG TAB CIPLA USA [Suspect]
     Active Substance: AMBRISENTAN
     Route: 048

REACTIONS (1)
  - Foot operation [None]
